FAERS Safety Report 13410611 (Version 5)
Quarter: 2017Q3

REPORT INFORMATION
  Report Type: Spontaneous
  Country: US (occurrence: US)
  Receive Date: 20170406
  Receipt Date: 20170919
  Transmission Date: 20171127
  Serious: Yes (Other)
  Sender: FDA-Public Use
  Company Number: US-ACORDA-ACO_136030_2017

PATIENT
  Age: 51 Year
  Sex: Female

DRUGS (11)
  1. AVONEX [Suspect]
     Active Substance: INTERFERON BETA-1A
     Indication: MULTIPLE SCLEROSIS
     Dosage: UNK
     Route: 065
     Dates: start: 20080801, end: 20110301
  2. ZINBRYTA [Suspect]
     Active Substance: DACLIZUMAB
     Dosage: UNK
     Route: 065
     Dates: end: 20170523
  3. AMPYRA [Suspect]
     Active Substance: DALFAMPRIDINE
     Indication: MULTIPLE SCLEROSIS
     Dosage: 10 MG, Q 12 HRS
     Route: 048
     Dates: start: 2016
  4. AVONEX [Suspect]
     Active Substance: INTERFERON BETA-1A
     Dosage: UNK
     Route: 065
     Dates: start: 20090801, end: 20100802
  5. ZINBRYTA [Suspect]
     Active Substance: DACLIZUMAB
     Indication: RELAPSING-REMITTING MULTIPLE SCLEROSIS
     Dosage: 150 MG, MONTHLY
     Route: 058
     Dates: start: 20170413, end: 20170513
  6. ZINBRYTA [Suspect]
     Active Substance: DACLIZUMAB
     Dosage: 150 MG, MONTHLY (2ND DOSE)
     Route: 058
     Dates: start: 20170523, end: 20170523
  7. COPAXONE [Suspect]
     Active Substance: GLATIRAMER ACETATE
     Indication: PRODUCT USED FOR UNKNOWN INDICATION
     Dosage: UNK
     Route: 065
  8. LAMICTAL [Suspect]
     Active Substance: LAMOTRIGINE
     Indication: PRODUCT USED FOR UNKNOWN INDICATION
     Dosage: UNK
     Route: 065
  9. AMPYRA [Suspect]
     Active Substance: DALFAMPRIDINE
     Indication: GAIT DISTURBANCE
     Dosage: 10 MG, Q 12 HRS
     Route: 048
     Dates: start: 2010
  10. TRILEPTAL [Suspect]
     Active Substance: OXCARBAZEPINE
     Indication: PRODUCT USED FOR UNKNOWN INDICATION
     Dosage: UNK
     Route: 065
  11. BETASERON [Suspect]
     Active Substance: INTERFERON BETA-1B
     Indication: PRODUCT USED FOR UNKNOWN INDICATION
     Dosage: UNK
     Route: 065

REACTIONS (22)
  - Injection site reaction [Not Recovered/Not Resolved]
  - Anal incontinence [Not Recovered/Not Resolved]
  - Renal disorder [Unknown]
  - Hepatic enzyme increased [Recovered/Resolved]
  - Facial pain [Not Recovered/Not Resolved]
  - Photophobia [Not Recovered/Not Resolved]
  - Nausea [Not Recovered/Not Resolved]
  - Renal function test abnormal [Recovering/Resolving]
  - Weight increased [Unknown]
  - Condition aggravated [Unknown]
  - Cardiac disorder [Unknown]
  - Condition aggravated [Unknown]
  - Temporomandibular joint syndrome [Not Recovered/Not Resolved]
  - Gait disturbance [Recovering/Resolving]
  - Condition aggravated [Not Recovered/Not Resolved]
  - Abdominal distension [Unknown]
  - Headache [Not Recovered/Not Resolved]
  - Pain [Not Recovered/Not Resolved]
  - Paraesthesia [Not Recovered/Not Resolved]
  - Oedema peripheral [Not Recovered/Not Resolved]
  - Condition aggravated [Recovered/Resolved]
  - Therapy cessation [Recovered/Resolved]

NARRATIVE: CASE EVENT DATE: 2017
